FAERS Safety Report 7008716-8 (Version None)
Quarter: 2010Q3

REPORT INFORMATION
  Report Type: 
  Country: None (occurrence: None)
  Receive Date: 20100921
  Receipt Date: 20100909
  Transmission Date: 20110219
  Serious: Yes (Hospitalization)
  Sender: FDA-Public Use
  Company Number: WAES1009USA01919

PATIENT
  Age: 66 Year
  Sex: Male

DRUGS (3)
  1. VYTORIN [Suspect]
     Indication: ACUTE CORONARY SYNDROME
     Dosage: 10-40 MG/DAILY PO
     Route: 048
     Dates: start: 20100513
  2. TAB PLACEBO (UNSPECIFIED) [Suspect]
     Indication: ACUTE CORONARY SYNDROME
     Dosage: PO
     Route: 048
     Dates: start: 20100513
  3. TAB PLACEBO (UNSPECIFIED) [Suspect]
     Indication: ACUTE CORONARY SYNDROME
     Dates: start: 20100513

REACTIONS (4)
  - HAEMOPTYSIS [None]
  - HYPOCHROMIC ANAEMIA [None]
  - MELAENA [None]
  - PULMONARY ALVEOLAR HAEMORRHAGE [None]
